FAERS Safety Report 5468223-0 (Version None)
Quarter: 2007Q3

REPORT INFORMATION
  Report Type: 
  Country: None (occurrence: None)
  Receive Date: 20070926
  Receipt Date: 20070917
  Transmission Date: 20080115
  Serious: Yes (Disabling, Other)
  Sender: FDA-Public Use
  Company Number: US-ELI_LILLY_AND_COMPANY-US200708000538

PATIENT
  Age: 76 Year
  Sex: Female

DRUGS (2)
  1. FORTEO [Suspect]
     Indication: OSTEOPOROSIS
     Dosage: 20 UG, DAILY (1/D)
     Dates: start: 20070401, end: 20070101
  2. FORTEO [Suspect]
     Dates: start: 20070601, end: 20070101

REACTIONS (3)
  - ARTHRALGIA [None]
  - METABOLIC DISORDER [None]
  - PARALYSIS [None]
